FAERS Safety Report 21627409 (Version 1)
Quarter: 2022Q4

REPORT INFORMATION
  Report Type: Report from Study
  Country: GR (occurrence: GR)
  Receive Date: 20221122
  Receipt Date: 20221122
  Transmission Date: 20230113
  Serious: Yes (Hospitalization, Other)
  Sender: FDA-Public Use
  Company Number: GR-ABBVIE-4174550

PATIENT
  Age: 81 Year
  Sex: Female

DRUGS (8)
  1. CARBIDOPA\LEVODOPA [Suspect]
     Active Substance: CARBIDOPA\LEVODOPA
     Indication: Parkinson^s disease
     Dosage: MORNING DOSE: 12.2 ML; CONTINUOUS RATE: 3.2 ML/H; EXTRA DOSE: 1 ML
     Route: 050
     Dates: start: 20201014
  2. CARBIDOPA\LEVODOPA [Suspect]
     Active Substance: CARBIDOPA\LEVODOPA
     Dosage: MORNING DOSE: 12.2 ML; CONTINUOUS RATE: 3.0 ML/H; EXTRA DOSE: 1.0 ML
     Route: 050
  3. Donepezil (Dementis) [Concomitant]
     Indication: Product used for unknown indication
     Route: 048
  4. Citalopram (Galopran) [Concomitant]
     Indication: Depression
     Route: 048
  5. Amantadine Hydrochloride (Symmetrel) [Concomitant]
     Indication: Parkinson^s disease
     Route: 048
  6. Ipratropium Bromide (Atrovent) [Concomitant]
     Indication: Nasopharyngitis
     Route: 055
  7. Bromazepam (Lexotanil) [Concomitant]
     Indication: Anxiety disorder
     Route: 048
  8. Clozapine (Leponex) [Concomitant]
     Indication: Hallucination
     Route: 048

REACTIONS (4)
  - Pneumonia [Recovered/Resolved]
  - Nasopharyngitis [Recovered/Resolved]
  - Oxygen saturation decreased [Recovered/Resolved]
  - Cataract [Unknown]

NARRATIVE: CASE EVENT DATE: 20221001
